FAERS Safety Report 23342358 (Version 1)
Quarter: 2023Q4

REPORT INFORMATION
  Report Type: Spontaneous
  Country: IE (occurrence: IE)
  Receive Date: 20231227
  Receipt Date: 20231227
  Transmission Date: 20240109
  Serious: Yes (Other)
  Sender: FDA-Public Use
  Company Number: IE-ELI_LILLY_AND_COMPANY-IE202309005685

PATIENT
  Age: 39 Year
  Sex: Male

DRUGS (7)
  1. SERTRALINE [Suspect]
     Active Substance: SERTRALINE HYDROCHLORIDE
     Indication: Depression
     Dosage: 50 MILLIGRAM
     Route: 065
  2. ZYPREXA [Suspect]
     Active Substance: OLANZAPINE
     Indication: Dissociation
     Dosage: 2.5 MILLIGRAM
     Route: 048
     Dates: start: 20200903, end: 2022
  3. ZYPREXA [Suspect]
     Active Substance: OLANZAPINE
     Indication: Depression
     Dosage: 5 MILLIGRAM
     Route: 048
     Dates: start: 202010, end: 202207
  4. ZYPREXA [Suspect]
     Active Substance: OLANZAPINE
     Indication: Anxiety
  5. ZYPREXA [Suspect]
     Active Substance: OLANZAPINE
     Indication: Affective disorder
  6. MIRTAZAPINE [Concomitant]
     Active Substance: MIRTAZAPINE
     Indication: Depression
     Dosage: 15 MILLIGRAM
     Route: 065
  7. ARIPIPRAZOLE [Concomitant]
     Active Substance: ARIPIPRAZOLE
     Indication: Product used for unknown indication
     Dosage: UNK
     Route: 065
     Dates: start: 202102

REACTIONS (18)
  - Abdominal distension [Unknown]
  - Gastrooesophageal reflux disease [Unknown]
  - Hepatic steatosis [Unknown]
  - Weight increased [Unknown]
  - Libido disorder [Unknown]
  - Suicidal ideation [Unknown]
  - Dyspepsia [Unknown]
  - Blood cholesterol increased [Unknown]
  - Swelling face [Unknown]
  - Hepatobiliary disease [Unknown]
  - Metabolic disorder [Unknown]
  - Injury [Unknown]
  - Retching [Unknown]
  - Anhedonia [Unknown]
  - Dyspnoea [Unknown]
  - Dysphagia [Unknown]
  - Vomiting [Unknown]
  - Drug withdrawal syndrome [Unknown]

NARRATIVE: CASE EVENT DATE: 20220101
